FAERS Safety Report 12348644 (Version 1)
Quarter: 2016Q2

REPORT INFORMATION
  Report Type: Report from Study
  Country: FR (occurrence: FR)
  Receive Date: 20160509
  Receipt Date: 20160509
  Transmission Date: 20160815
  Serious: Yes (Hospitalization, Other)
  Sender: FDA-Public Use
  Company Number: FR-BRISTOL-MYERS SQUIBB COMPANY-BMS-2016-035183

PATIENT
  Age: 66 Year
  Sex: Male

DRUGS (1)
  1. APIXABAN [Suspect]
     Active Substance: APIXABAN
     Indication: CEREBROVASCULAR ACCIDENT PROPHYLAXIS
     Dosage: 5 MG, BID
     Route: 048
     Dates: start: 20160220

REACTIONS (7)
  - Dyspnoea [Recovered/Resolved]
  - Inflammation [Recovered/Resolved]
  - Coronary artery bypass [Recovered/Resolved]
  - Asthenia [Recovered/Resolved]
  - Atrial fibrillation [Recovered/Resolved]
  - Mitral valve incompetence [Recovered/Resolved]
  - Pleurisy [Recovered/Resolved]

NARRATIVE: CASE EVENT DATE: 20160404
